FAERS Safety Report 8888236 (Version 1)
Quarter: 2012Q4

REPORT INFORMATION
  Report Type: Report from Study
  Country: US (occurrence: US)
  Receive Date: 20121106
  Receipt Date: 20121106
  Transmission Date: 20130627
  Serious: Yes (Disabling)
  Sender: FDA-Public Use
  Company Number: US-JNJFOC-20121017341

PATIENT
  Age: 16 Year
  Sex: Male
  Weight: 50.6 kg

DRUGS (7)
  1. REMICADE [Suspect]
     Indication: INFLAMMATORY BOWEL DISEASE
     Route: 042
     Dates: start: 20101205, end: 20111025
  2. HUMIRA [Concomitant]
     Indication: INFLAMMATORY BOWEL DISEASE
     Dates: start: 20111111
  3. FLUOCINOLONE ACETONIDE [Concomitant]
  4. IRON [Concomitant]
  5. VITAMIN D [Concomitant]
  6. MULTIVIT [Concomitant]
  7. IBUPROFEN [Concomitant]

REACTIONS (1)
  - Clostridium difficile infection [Recovered/Resolved]
